FAERS Safety Report 18313449 (Version 1)
Quarter: 2020Q3

REPORT INFORMATION
  Report Type: Spontaneous
  Country: FR (occurrence: FR)
  Receive Date: 20200925
  Receipt Date: 20200925
  Transmission Date: 20201103
  Serious: Yes (Hospitalization)
  Sender: FDA-Public Use
  Company Number: FR-CADILA HEALTHCARE LIMITED-FR-ZYDUS-022668

PATIENT

DRUGS (11)
  1. HYPERIUM [Suspect]
     Active Substance: RILMENIDINE PHOSPHATE
     Indication: SUICIDE ATTEMPT
     Dosage: 90 MILLIGRAM
     Route: 048
  2. COAPROVEL [Concomitant]
     Active Substance: HYDROCHLOROTHIAZIDE\IRBESARTAN
     Dosage: 1 DOSAGE FORM,(INTERVAL :1 DAYS)
     Route: 048
  3. MIANSERINE [Concomitant]
     Active Substance: MIANSERIN HYDROCHLORIDE
     Dosage: 30 MILLIGRAM,(INTERVAL :1 DAYS)
  4. LEXOMIL [Concomitant]
     Active Substance: BROMAZEPAM
     Dosage: 1.25 MILLIGRAM,(INTERVAL :1 DAYS)
     Route: 048
  5. ATENOLOL. [Suspect]
     Active Substance: ATENOLOL
     Indication: SUICIDE ATTEMPT
     Dosage: 2250 MILLIGRAM
     Route: 048
  6. ESOMEPRAZOLE. [Concomitant]
     Active Substance: ESOMEPRAZOLE MAGNESIUM
     Dosage: 20 MILLIGRAM,(INTERVAL :1 DAYS)
     Route: 048
  7. FUROSEMIDE. [Concomitant]
     Active Substance: FUROSEMIDE
     Dosage: 40 MILLIGRAM,(INTERVAL :1 DAYS)
     Route: 048
  8. LEXOMIL [Concomitant]
     Active Substance: BROMAZEPAM
     Dosage: 3 MILLIGRAM,(INTERVAL :1 DAYS)
     Route: 048
  9. DOLIPRANE [Concomitant]
     Active Substance: ACETAMINOPHEN
     Dosage: 3000 MILLIGRAM,(INTERVAL :1 DAYS)
     Route: 048
  10. ZOPICLONE [Concomitant]
     Active Substance: ZOPICLONE
     Dosage: 7.5 MILLIGRAM,(INTERVAL :1 DAYS)
     Route: 048
  11. LEVOTHYROX [Concomitant]
     Active Substance: LEVOTHYROXINE
     Dosage: 1 DOSAGE FORM,(INTERVAL :1 DAYS)
     Route: 048

REACTIONS (7)
  - Ventricular tachycardia [Recovered/Resolved]
  - Somnolence [Recovered/Resolved]
  - Electrocardiogram QT prolonged [Recovered/Resolved]
  - Electrocardiogram repolarisation abnormality [Recovered/Resolved]
  - Hypokalaemia [Recovered/Resolved]
  - Haemodynamic instability [Recovered/Resolved]
  - Bradycardia [Recovered/Resolved]

NARRATIVE: CASE EVENT DATE: 20171224
